FAERS Safety Report 24103953 (Version 1)
Quarter: 2024Q3

REPORT INFORMATION
  Report Type: Spontaneous
  Country: US (occurrence: US)
  Receive Date: 20240717
  Receipt Date: 20240717
  Transmission Date: 20241017
  Serious: Yes (Death)
  Sender: HETERO
  Company Number: US-HETERO-HET2024US02304

PATIENT
  Sex: Male

DRUGS (1)
  1. HYDRALAZINE [Suspect]
     Active Substance: HYDRALAZINE HYDROCHLORIDE
     Indication: Cutaneous vasculitis
     Dosage: UNK
     Route: 065

REACTIONS (3)
  - Cryptococcosis [Fatal]
  - Angiopathy [Fatal]
  - Product use in unapproved indication [Unknown]
